FAERS Safety Report 4305400-6 (Version None)
Quarter: 2004Q1

REPORT INFORMATION
  Report Type: 
  Country: None (occurrence: None)
  Receive Date: 20040226
  Receipt Date: 20031010
  Transmission Date: 20041129
  Serious: No
  Sender: FDA-Public Use
  Company Number: US-BRISTOL-MYERS SQUIBB COMPANY-12408787

PATIENT
  Age: 79 Year
  Sex: Female
  Weight: 58 kg

DRUGS (2)
  1. TAXOL [Suspect]
     Route: 042
     Dates: start: 19970101, end: 19980101
  2. CARBOPLATIN [Suspect]
     Route: 042
     Dates: start: 19970101, end: 19970101

REACTIONS (2)
  - ALOPECIA [None]
  - PHOTOPSIA [None]
